FAERS Safety Report 8398492-9 (Version None)
Quarter: 2012Q2

REPORT INFORMATION
  Report Type: 
  Country: None (occurrence: None)
  Receive Date: 20120531
  Receipt Date: 20120524
  Transmission Date: 20120825
  Serious: No
  Sender: FDA-Public Use
  Company Number: US-PFIZER INC-2012126500

PATIENT
  Age: 40 Year
  Sex: Male
  Weight: 68.027 kg

DRUGS (13)
  1. EFFEXOR [Suspect]
     Dosage: 37.5 MG, DAILY
     Dates: start: 20120325, end: 20120401
  2. ATIVAN [Concomitant]
     Dosage: UNK
  3. TRILEPTAL [Concomitant]
     Dosage: UNK
     Dates: start: 20120410
  4. EFFEXOR [Suspect]
     Indication: BIPOLAR I DISORDER
     Dosage: 225 MG, DAILY
     Dates: end: 20120308
  5. RISPERDAL [Concomitant]
     Dosage: UNK
     Dates: start: 20120301, end: 20120301
  6. REMERON [Concomitant]
     Dosage: UNK
     Dates: end: 20120318
  7. LATUDA [Suspect]
     Dosage: 40 MG, HS
     Route: 048
     Dates: start: 20120322, end: 20120325
  8. EFFEXOR [Suspect]
     Dosage: 112.5 MG, DAILY
     Dates: start: 20120308, end: 20120311
  9. AMPHETAMINE SULFATE [Concomitant]
     Dosage: UNK
  10. LATUDA [Suspect]
     Dosage: 20 MG, HS
     Route: 048
     Dates: start: 20120325, end: 20120410
  11. LAMICTAL [Concomitant]
     Dosage: UNK
     Dates: start: 20120308
  12. EFFEXOR [Suspect]
     Dosage: 75 MG, DAILY
     Dates: start: 20120311, end: 20120325
  13. LATUDA [Suspect]
     Indication: BIPOLAR I DISORDER
     Dosage: 20 MG, ONCE DAILY AT BEDTIME
     Route: 048
     Dates: start: 20120308, end: 20120322

REACTIONS (5)
  - CATATONIA [None]
  - HYPOMANIA [None]
  - ANXIETY [None]
  - POLLAKIURIA [None]
  - INSOMNIA [None]
